FAERS Safety Report 19419007 (Version 1)
Quarter: 2021Q2

REPORT INFORMATION
  Report Type: Other
  Country: IN (occurrence: IN)
  Receive Date: 20210615
  Receipt Date: 20210615
  Transmission Date: 20210717
  Serious: Yes (Other)
  Sender: FDA-Public Use
  Company Number: IN-APRECIA PHARMACEUTICALS-APRE20210667

PATIENT

DRUGS (1)
  1. LEVETIRACETAM. [Suspect]
     Active Substance: LEVETIRACETAM
     Indication: NEONATAL SEIZURE
     Dosage: LOADING DOSE: 40 MG/KG INFUSED OVER 15 MINUTES
     Route: 042

REACTIONS (3)
  - Respiratory depression [Unknown]
  - Product use in unapproved indication [Unknown]
  - Product use issue [Unknown]
